FAERS Safety Report 4741483-7 (Version None)
Quarter: 2005Q3

REPORT INFORMATION
  Report Type: 
  Country: None (occurrence: None)
  Receive Date: 20050810
  Receipt Date: 20020517
  Transmission Date: 20060218
  Serious: Yes (Life-Threatening, Hospitalization)
  Sender: FDA-Public Use
  Company Number: DE-AMGEN-02050524

PATIENT
  Sex: Female

DRUGS (6)
  1. ENBREL [Suspect]
     Indication: PSORIATIC ARTHROPATHY
     Route: 058
     Dates: start: 20010901
  2. ENBREL [Suspect]
  3. TRIVORA-21 [Suspect]
     Dosage: 30 MCG
     Route: 048
     Dates: start: 20020201
  4. METHOTREXATE [Suspect]
     Route: 058
     Dates: start: 20000301, end: 20020205
  5. PREDNISOLONE [Concomitant]
     Dates: start: 20000301, end: 20020205
  6. FOLIC ACID [Concomitant]
     Dates: start: 20000301, end: 20020205

REACTIONS (3)
  - RHEUMATOID ARTHRITIS [None]
  - STEVENS-JOHNSON SYNDROME [None]
  - TOXIC EPIDERMAL NECROLYSIS [None]
